FAERS Safety Report 7581754-2 (Version None)
Quarter: 2011Q2

REPORT INFORMATION
  Report Type: 
  Country: None (occurrence: None)
  Receive Date: 20110629
  Receipt Date: 20110628
  Transmission Date: 20111010
  Serious: Yes (Hospitalization, Other)
  Sender: FDA-Public Use
  Company Number: US-UCBSA-032840

PATIENT
  Sex: Female
  Weight: 69.7 kg

DRUGS (2)
  1. CIMZIA [Suspect]
     Indication: CROHN'S DISEASE
     Route: 058
     Dates: start: 20091109
  2. METHOTREXATE [Concomitant]
     Indication: CROHN'S DISEASE
     Route: 058
     Dates: start: 20090501, end: 20110309

REACTIONS (4)
  - RENAL FAILURE ACUTE [None]
  - SEPTIC SHOCK [None]
  - INFLUENZA [None]
  - ARTHRITIS [None]
